FAERS Safety Report 4889165-5 (Version None)
Quarter: 2005Q4

REPORT INFORMATION
  Report Type: 
  Country: None (occurrence: None)
  Receive Date: 20051215
  Receipt Date: 20041220
  Transmission Date: 20060501
  Serious: Yes (Hospitalization, Other)
  Sender: FDA-Public Use
  Company Number: 2004104423

PATIENT
  Age: 38 Year
  Sex: Male
  Weight: 74.3899 kg

DRUGS (5)
  1. BEXTRA [Suspect]
     Indication: OSTEOARTHRITIS
     Dosage: 20 MG (20 MG, 1 IN 1 D)
     Dates: start: 20041020
  2. METHADONE HCL [Concomitant]
  3. OXYCODONE HYDROCHLORIDE AND ACETAMINOPHEN [Concomitant]
  4. METAXALONE [Concomitant]
  5. MACROGOL (MACROGOL) [Concomitant]

REACTIONS (2)
  - ACUTE MYOCARDIAL INFARCTION [None]
  - LOW DENSITY LIPOPROTEIN INCREASED [None]
